FAERS Safety Report 13429207 (Version 1)
Quarter: 2017Q2

REPORT INFORMATION
  Report Type: Report from Study
  Country: AU (occurrence: AU)
  Receive Date: 20170411
  Receipt Date: 20170411
  Transmission Date: 20170830
  Serious: Yes (Hospitalization, Other)
  Sender: FDA-Public Use
  Company Number: AU-BRISTOL-MYERS SQUIBB COMPANY-BMS-2017-029437

PATIENT
  Age: 54 Year
  Sex: Female
  Weight: 66.7 kg

DRUGS (7)
  1. IPILIMUMAB [Suspect]
     Active Substance: IPILIMUMAB
     Indication: MALIGNANT MELANOMA
     Dosage: 1 DF, UNK
     Route: 042
     Dates: start: 20160728
  2. PANTOPRAZOLE [Concomitant]
     Active Substance: PANTOPRAZOLE
     Indication: GASTRODUODENAL HAEMORRHAGE
     Route: 065
  3. METHYLPREDNISOLONE. [Concomitant]
     Active Substance: METHYLPREDNISOLONE
     Indication: LIVER FUNCTION TEST ABNORMAL
     Dosage: 70 MG, UNK
     Route: 042
     Dates: start: 20160809, end: 20160809
  4. PANTOPRAZOLE [Concomitant]
     Active Substance: PANTOPRAZOLE
     Indication: DYSPEPSIA
     Dosage: 40 MG, UNK
     Route: 048
     Dates: start: 20160809, end: 20160905
  5. PREDNISONE. [Concomitant]
     Active Substance: PREDNISONE
     Indication: PLEURITIC PAIN
     Dosage: 50 MG, UNK
     Route: 048
     Dates: start: 20170304
  6. NIVOLUMAB [Suspect]
     Active Substance: NIVOLUMAB
     Indication: MALIGNANT MELANOMA
     Dosage: 1 DF, UNK
     Route: 042
     Dates: start: 20160728
  7. TAZOCIN [Concomitant]
     Active Substance: PIPERACILLIN SODIUM\TAZOBACTAM SODIUM
     Indication: LIVER FUNCTION TEST ABNORMAL
     Dosage: 45 G, UNK
     Route: 042
     Dates: start: 20160809, end: 20160809

REACTIONS (1)
  - Hypercalcaemia [Recovered/Resolved]

NARRATIVE: CASE EVENT DATE: 20170328
